FAERS Safety Report 9502180 (Version 2)
Quarter: 2013Q4

REPORT INFORMATION
  Report Type: Report from Study
  Country: KR (occurrence: KR)
  Receive Date: 20130905
  Receipt Date: 20131218
  Transmission Date: 20140711
  Serious: No
  Sender: FDA-Public Use
  Company Number: PHHY2013KR095224

PATIENT
  Age: 54 Year
  Sex: Male

DRUGS (24)
  1. AMN107 [Suspect]
     Indication: CHRONIC MYELOID LEUKAEMIA
     Dosage: 600 MG/DAY
     Route: 048
     Dates: start: 20120813
  2. ACTIFED [Concomitant]
     Indication: UPPER RESPIRATORY TRACT INFECTION
     Dosage: 3 DF, UNK
     Route: 048
     Dates: start: 20130128, end: 20130207
  3. APETROL                            /00284501/ [Concomitant]
     Indication: ADJUVANT THERAPY
     Dosage: 10 ML, UNK
     Route: 048
     Dates: start: 20120903, end: 20120907
  4. BANAN [Concomitant]
     Indication: INFECTION PROPHYLAXIS
     Dosage: 300 MG, UNK
     Route: 048
     Dates: start: 20120925, end: 20121006
  5. CODAEWON [Concomitant]
     Indication: UPPER RESPIRATORY TRACT INFECTION
     Dosage: 3 UNK, UNK
     Route: 048
     Dates: start: 20130128, end: 20130207
  6. DIAMICRON MR [Concomitant]
     Indication: DIABETES MELLITUS
     Dosage: 30 MG, UNK
     Route: 048
     Dates: start: 20130218, end: 20130709
  7. GALVUS [Concomitant]
     Indication: DIABETES MELLITUS
     Dosage: 100 MG, UNK
     Route: 048
     Dates: start: 20120820
  8. GASMOTIN [Concomitant]
     Indication: PROPHYLAXIS
     Dosage: 15 MG, UNK
     Route: 048
     Dates: start: 20120903
  9. GLUCODOWN [Concomitant]
     Indication: DIABETES MELLITUS
     Dosage: 1500 MG, UNK
     Route: 048
     Dates: start: 20120820, end: 20121016
  10. GLUCOPHAGE [Concomitant]
     Indication: DIABETES MELLITUS
     Dosage: 500 MG, UNK
     Route: 048
     Dates: start: 20121231
  11. GLUPA [Concomitant]
     Indication: DIABETES MELLITUS
     Dosage: 1700 MG, UNK
     Route: 048
     Dates: start: 20121231
  12. KLIMAIN [Concomitant]
     Indication: PAIN PROPHYLAXIS
     Dosage: 1110 MG, UNK
     Route: 048
     Dates: start: 20120925, end: 20121006
  13. MOSAONE [Concomitant]
     Indication: PROPHYLAXIS
     Dosage: 15 MG, UNK
     Route: 048
     Dates: start: 20120925, end: 20121006
  14. MUCOSTA [Concomitant]
     Indication: PROPHYLAXIS
     Dosage: 200 MG, UNK
     Route: 048
     Dates: start: 20121012, end: 20121026
  15. NADIXA [Concomitant]
     Indication: DRUG ERUPTION
     Dosage: 10 G, UNK
     Dates: start: 20120821, end: 20120822
  16. NEURONTIN [Concomitant]
     Indication: HYPOAESTHESIA
     Dosage: 900 MG, UNK
     Route: 048
     Dates: start: 20121005
  17. NEXUM [Concomitant]
     Indication: PROPHYLAXIS
     Dosage: 20 MG, UNK
     Route: 048
     Dates: start: 20120820, end: 20130704
  18. SELBEX [Concomitant]
     Indication: PROPHYLAXIS
     Dosage: 150 MG, UNK
     Route: 048
     Dates: start: 20120925, end: 20121006
  19. TYLENOL ER [Concomitant]
     Indication: ABDOMINAL PAIN
     Dosage: 1300 MG, UNK
     Route: 048
     Dates: start: 20130114, end: 20130114
  20. TYLENOL ER [Concomitant]
     Indication: PAIN IN EXTREMITY
  21. UCERAX [Concomitant]
     Indication: PRURITUS
     Dosage: 75 MG, UNK
     Route: 048
     Dates: start: 20120813, end: 20121106
  22. VARIDASE [Concomitant]
     Indication: INFLAMMATION
     Dosage: 2 DF, UNK
     Route: 048
     Dates: start: 20121012, end: 20121026
  23. VARIDASE [Concomitant]
     Indication: PROPHYLAXIS
  24. ZYLORIC [Concomitant]
     Indication: PROPHYLAXIS
     Dosage: 300 MG, UNK
     Route: 048
     Dates: start: 20120813, end: 20120820

REACTIONS (2)
  - Decreased appetite [Recovered/Resolved]
  - Fatigue [Recovered/Resolved]
